FAERS Safety Report 9958925 (Version 1)
Quarter: 2014Q1

REPORT INFORMATION
  Report Type: Spontaneous
  Country: IN (occurrence: None)
  Receive Date: 20140227
  Receipt Date: 20140227
  Transmission Date: 20141002
  Serious: Yes (Hospitalization)
  Sender: FDA-Public Use
  Company Number: UCM201402-000018

PATIENT
  Age: 28 Year
  Sex: Female

DRUGS (1)
  1. AMLODIPINE (AMLODIPINE) (AMLODIPINE) [Suspect]
     Dosage: 50 TABLETS (STRENGHT: 5 MG)

REACTIONS (11)
  - Shock [None]
  - Respiratory failure [None]
  - Renal failure acute [None]
  - Pulmonary oedema [None]
  - Overdose [None]
  - Heart rate increased [None]
  - Respiratory rate increased [None]
  - Oxygen saturation decreased [None]
  - Generalised oedema [None]
  - Crepitations [None]
  - Pleural effusion [None]
